FAERS Safety Report 16045044 (Version 2)
Quarter: 2019Q1

REPORT INFORMATION
  Report Type: Spontaneous
  Country: US (occurrence: US)
  Receive Date: 20190307
  Receipt Date: 20190316
  Transmission Date: 20190418
  Serious: No
  Sender: FDA-Public Use
  Company Number: US-BIOGEN-2019BI00704639

PATIENT
  Age: 56 Year
  Sex: Female

DRUGS (2)
  1. AVONEX [Suspect]
     Active Substance: INTERFERON BETA-1A
     Indication: MULTIPLE SCLEROSIS
     Route: 030
     Dates: start: 20190226
  2. AVONEX [Suspect]
     Active Substance: INTERFERON BETA-1A
     Route: 030
     Dates: start: 20190305

REACTIONS (8)
  - Accidental overdose [Unknown]
  - Muscular weakness [Unknown]
  - Influenza like illness [Recovered/Resolved]
  - Dizziness [Unknown]
  - Mobility decreased [Unknown]
  - Motor dysfunction [Unknown]
  - Malaise [Unknown]
  - Strabismus [Unknown]

NARRATIVE: CASE EVENT DATE: 20190226
